FAERS Safety Report 9003756 (Version 1)
Quarter: 2013Q1

REPORT INFORMATION
  Report Type: Spontaneous
  Country: US (occurrence: US)
  Receive Date: 20130108
  Receipt Date: 20130108
  Transmission Date: 20140127
  Serious: No
  Sender: FDA-Public Use
  Company Number: US-GLAXOSMITHKLINE-A0973240A

PATIENT
  Age: 61 Year
  Sex: Female
  Weight: 60.9 kg

DRUGS (4)
  1. LOVAZA [Suspect]
     Indication: BLOOD TRIGLYCERIDES INCREASED
     Dosage: 2TAB TWICE PER DAY
     Route: 048
     Dates: start: 20120405, end: 20120405
  2. PROZAC [Concomitant]
  3. HCTZ [Concomitant]
  4. TRAZODONE [Concomitant]

REACTIONS (3)
  - Nausea [Recovered/Resolved]
  - Vomiting [Recovered/Resolved]
  - Abdominal pain [Recovered/Resolved]
